FAERS Safety Report 7091934-0 (Version None)
Quarter: 2010Q4

REPORT INFORMATION
  Report Type: 
  Country: None (occurrence: None)
  Receive Date: 20101109
  Receipt Date: 20101101
  Transmission Date: 20110411
  Serious: Yes (Death, Other)
  Sender: FDA-Public Use
  Company Number: JP-GENZYME-THYM-1002031

PATIENT
  Age: 60 Year
  Sex: Male
  Weight: 64 kg

DRUGS (9)
  1. THYMOGLOBULIN [Suspect]
     Indication: BONE MARROW CONDITIONING REGIMEN
     Dosage: 34.5 MG, ONCE
     Route: 042
     Dates: start: 20091213, end: 20091213
  2. THYMOGLOBULIN [Suspect]
     Dosage: 128.0 MG, QD
     Route: 042
     Dates: start: 20091214, end: 20091215
  3. METHYLPREDNISOLONE SODIUM SUCCINATE [Concomitant]
     Indication: PREMEDICATION
     Dosage: UNK
     Dates: start: 20091213, end: 20091213
  4. LEVOFLOXACIN [Concomitant]
     Indication: ANTIBIOTIC PROPHYLAXIS
     Dosage: UNK
     Dates: start: 20091203, end: 20091230
  5. FLUCONAZOLE [Concomitant]
     Indication: ANTIFUNGAL PROPHYLAXIS
     Dosage: UNK
     Dates: start: 20091203, end: 20091230
  6. ACYCLOVIR [Concomitant]
     Indication: ANTIVIRAL PROPHYLAXIS
     Dosage: UNK
     Dates: start: 20091203, end: 20091230
  7. SULFAMETHOXAZOLE W [Concomitant]
     Indication: ANTIBIOTIC PROPHYLAXIS
     Dosage: UNK
     Dates: start: 20091203, end: 20091212
  8. MEROPENEM [Concomitant]
     Indication: ANTIBIOTIC PROPHYLAXIS
     Dosage: UNK
     Dates: start: 20091231, end: 20100315
  9. VORICONAZOLE [Concomitant]
     Indication: ANTIFUNGAL PROPHYLAXIS
     Dosage: UNK
     Dates: start: 20091231, end: 20100315

REACTIONS (3)
  - HEPATIC FAILURE [None]
  - PULMONARY ALVEOLAR HAEMORRHAGE [None]
  - VENOOCCLUSIVE DISEASE [None]
